FAERS Safety Report 9667678 (Version 2)
Quarter: 2013Q4

REPORT INFORMATION
  Report Type: Spontaneous
  Country: US (occurrence: US)
  Receive Date: 20131101
  Receipt Date: 20131101
  Transmission Date: 20140711
  Serious: Yes (Other)
  Sender: FDA-Public Use
  Company Number: US-ORACLE-2012S1000018

PATIENT
  Age: 35 Year
  Sex: Male
  Weight: 68.04 kg

DRUGS (4)
  1. KRYSTEXXA INJECTION [Suspect]
     Indication: GOUT
     Route: 042
  2. INSULIN [Concomitant]
     Indication: DIABETES MELLITUS
  3. ULORIC [Concomitant]
     Indication: GOUT
  4. ALL OTHER THERAPEUTIC PRODUCTS [Concomitant]
     Indication: PREMEDICATION

REACTIONS (2)
  - Infusion related reaction [Recovered/Resolved]
  - Therapeutic response decreased [Unknown]
